FAERS Safety Report 18285331 (Version 1)
Quarter: 2020Q3

REPORT INFORMATION
  Report Type: Spontaneous
  Country: DE (occurrence: DE)
  Receive Date: 20200918
  Receipt Date: 20200918
  Transmission Date: 20201103
  Serious: Yes (Hospitalization)
  Sender: FDA-Public Use
  Company Number: DE-SA-2020SA251416

PATIENT

DRUGS (8)
  1. KREON [Concomitant]
     Active Substance: PANCRELIPASE
     Dosage: NK MG, NK
  2. OXALIPLATIN. [Suspect]
     Active Substance: OXALIPLATIN
     Dosage: UNK
  3. INSULIN HUMAN [Concomitant]
     Active Substance: INSULIN HUMAN
     Dosage: NK IE, NACH SCHEMA
  4. FOLINIC ACID [Suspect]
     Active Substance: LEUCOVORIN
     Dosage: UNK
  5. FLUOROURACIL. [Suspect]
     Active Substance: FLUOROURACIL
     Dosage: UNK
  6. OXYCODON [Concomitant]
     Active Substance: OXYCODONE
     Dosage: NK MG, BEI BEDARF
  7. IBUPROFEN. [Concomitant]
     Active Substance: IBUPROFEN
     Dosage: UNK UNK, PRN
  8. INSULIN GLARGINE [Concomitant]
     Active Substance: INSULIN GLARGINE
     Dosage: ACCORDING TO THE SCHEME

REACTIONS (7)
  - Oropharyngeal pain [Unknown]
  - Dysphagia [Unknown]
  - Condition aggravated [Unknown]
  - Weight decreased [Unknown]
  - Thirst [Unknown]
  - General physical health deterioration [Unknown]
  - Dehydration [Unknown]
